FAERS Safety Report 11631504 (Version 1)
Quarter: 2015Q4

REPORT INFORMATION
  Report Type: Spontaneous
  Country: US (occurrence: US)
  Receive Date: 20151015
  Receipt Date: 20151015
  Transmission Date: 20160304
  Serious: Yes (Other)
  Sender: FDA-Public Use
  Company Number: US-ROCHE-1645771

PATIENT
  Age: 17 Year
  Sex: Male
  Weight: 47.67 kg

DRUGS (3)
  1. NUTROPIN AQ [Suspect]
     Active Substance: SOMATROPIN
     Indication: GROWTH HORMONE DEFICIENCY
     Route: 058
     Dates: start: 20150923
  2. CLARITIN [Concomitant]
     Active Substance: LORATADINE
     Route: 048
  3. SYNTHROID [Concomitant]
     Active Substance: LEVOTHYROXINE SODIUM
     Indication: HYPOTHYROIDISM
     Route: 048

REACTIONS (3)
  - Vomiting [Unknown]
  - Pituitary cyst [Unknown]
  - Migraine [Unknown]

NARRATIVE: CASE EVENT DATE: 20150925
